FAERS Safety Report 15937603 (Version 1)
Quarter: 2019Q1

REPORT INFORMATION
  Report Type: Spontaneous
  Country: US (occurrence: US)
  Receive Date: 20190208
  Receipt Date: 20190208
  Transmission Date: 20190417
  Serious: No
  Sender: FDA-Public Use
  Company Number: None

PATIENT
  Sex: Female

DRUGS (4)
  1. LOVENOX (DATES UNKNOWN) [Concomitant]
  2. XARELTO (DATES UNKNOWN) [Concomitant]
  3. ZEJULA [Suspect]
     Active Substance: NIRAPARIB
     Indication: PRODUCT USED FOR UNKNOWN INDICATION
  4. FRAGMIN (DATES UNKNOWN) [Concomitant]

REACTIONS (7)
  - Fatigue [None]
  - Neutropenia [None]
  - Immune system disorder [None]
  - Hypersomnia [None]
  - Impatience [None]
  - Dyspnoea [None]
  - Asthenia [None]
